FAERS Safety Report 9594818 (Version 2)
Quarter: 2013Q4

REPORT INFORMATION
  Report Type: Spontaneous
  Country: US (occurrence: US)
  Receive Date: 20131004
  Receipt Date: 20131004
  Transmission Date: 20140711
  Serious: No
  Sender: FDA-Public Use
  Company Number: US-PURDUE-USA-2012-0091209

PATIENT
  Age: 50 Year
  Sex: Male
  Weight: 92.97 kg

DRUGS (1)
  1. BUTRANS [Suspect]
     Indication: BACK PAIN
     Dosage: 10 MCG, UNK
     Route: 062

REACTIONS (2)
  - Palpitations [Recovered/Resolved]
  - Insomnia [Recovered/Resolved]
